FAERS Safety Report 8553939-X (Version None)
Quarter: 2012Q3

REPORT INFORMATION
  Report Type: 
  Country: None (occurrence: None)
  Receive Date: 20120731
  Receipt Date: 20120717
  Transmission Date: 20120928
  Serious: Yes (Death, Hospitalization, Disabling, Other)
  Sender: FDA-Public Use
  Company Number: US-009507513-0412USA02795

PATIENT

DRUGS (26)
  1. CIPROFLOXACIN HCL [Concomitant]
     Dosage: 750 MG, BID
  2. PLETAL [Concomitant]
  3. HUMULIN R [Concomitant]
     Dosage: 10-12
  4. IRON (UNSPECIFIED) (+) VITAMINS (UNSPECIFIED) [Concomitant]
     Dosage: 200 MG, QD
  5. METICORTEN [Concomitant]
     Dosage: 5-40
  6. ASCORBIC ACID [Concomitant]
     Dosage: 250-1000
  7. CENTRUM (MINERALS (UNSPECIFIED) (+) VITAMINS (UNSPECIFIED)) [Concomitant]
     Dosage: UNK UNK, QD
  8. LORTAB [Concomitant]
     Indication: PAIN
     Dosage: UNK UNK, PRN
  9. IMURAN [Concomitant]
  10. FOSAMAX [Concomitant]
     Dosage: 10 MG, QD
     Route: 048
  11. ROFECOXIB [Suspect]
     Dosage: 12.5-50
     Route: 048
     Dates: start: 20010417, end: 20030108
  12. ROFECOXIB [Suspect]
     Dosage: 12.5-50
     Route: 048
     Dates: start: 20011101, end: 20030101
  13. VITAMIN A [Concomitant]
  14. INSULIN [Concomitant]
  15. ROFECOXIB [Suspect]
     Dosage: 25 MG, UNK
     Route: 048
  16. CEPHALEXIN [Suspect]
  17. VITAMIN E [Concomitant]
     Dosage: 200-800
  18. AMARYL [Concomitant]
     Dosage: 4 MG, QD
  19. GARLIC [Concomitant]
  20. GLUCOPHAGE [Concomitant]
     Dosage: 500 MG, HS
  21. FLAXSEED [Concomitant]
     Dosage: 1 DF, QD
  22. LENTE [Concomitant]
     Dosage: 10 IU, HS
  23. HUMALOG [Concomitant]
     Dosage: BEFORE MEALS
  24. IRON (UNSPECIFIED) [Concomitant]
     Dosage: 340 MG, QD
  25. CALCIUM (UNSPECIFIED) [Concomitant]
     Dosage: 600 MG, BID
  26. ASPIRIN [Concomitant]
     Dosage: 1

REACTIONS (73)
  - ARTERIAL INSUFFICIENCY [None]
  - BACK PAIN [None]
  - ARTERIAL OCCLUSIVE DISEASE [None]
  - STAPHYLOCOCCAL SEPSIS [None]
  - HYPERTENSION [None]
  - INTERVERTEBRAL DISC PROTRUSION [None]
  - CATARACT OPERATION [None]
  - ANAEMIA [None]
  - DRY GANGRENE [None]
  - HUMERUS FRACTURE [None]
  - NECROSIS [None]
  - SOFT TISSUE NECROSIS [None]
  - CARDIOMYOPATHY [None]
  - ANGIOPATHY [None]
  - CUSHINGOID [None]
  - BACTERIAL TEST POSITIVE [None]
  - ELECTROCARDIOGRAM ST-T CHANGE [None]
  - ARTERITIS [None]
  - DRUG TOLERANCE [None]
  - VASCULITIS [None]
  - ACETABULUM FRACTURE [None]
  - RETROPERITONEAL ABSCESS [None]
  - IRON DEFICIENCY [None]
  - PERIPHERAL ARTERIAL OCCLUSIVE DISEASE [None]
  - DYSLIPIDAEMIA [None]
  - DYSPNOEA [None]
  - NAUSEA [None]
  - ULCER [None]
  - PSEUDOMONAS INFECTION [None]
  - PSOAS ABSCESS [None]
  - ABSCESS LIMB [None]
  - CONSTIPATION [None]
  - ABSCESS [None]
  - THROMBOSIS [None]
  - CARPAL TUNNEL SYNDROME [None]
  - SKIN GRAFT FAILURE [None]
  - SINUS TACHYCARDIA [None]
  - BONE EROSION [None]
  - DEATH [None]
  - ARTERIOSCLEROSIS [None]
  - MYOCARDIAL INFARCTION [None]
  - OVERDOSE [None]
  - EMOTIONAL DISTRESS [None]
  - TENDONITIS [None]
  - AORTIC VALVE SCLEROSIS [None]
  - MITRAL VALVE INCOMPETENCE [None]
  - PAIN [None]
  - POST PROCEDURAL HAEMATOMA [None]
  - TENDON NECROSIS [None]
  - EXTREMITY NECROSIS [None]
  - OSTEOMYELITIS [None]
  - MUSCULOSKELETAL DISORDER [None]
  - SKIN ULCER [None]
  - MITRAL VALVE SCLEROSIS [None]
  - ADRENAL INSUFFICIENCY [None]
  - FALL [None]
  - INSOMNIA [None]
  - SUDDEN CARDIAC DEATH [None]
  - EMBOLISM [None]
  - STAPHYLOCOCCAL INFECTION [None]
  - INTERVERTEBRAL DISCITIS [None]
  - STAPHYLOCOCCAL BACTERAEMIA [None]
  - MALNUTRITION [None]
  - GENERAL PHYSICAL HEALTH DETERIORATION [None]
  - CORONARY ARTERY DISEASE [None]
  - BURSITIS [None]
  - TYPE 1 DIABETES MELLITUS [None]
  - CATABOLIC STATE [None]
  - JOINT DISLOCATION [None]
  - SCOLIOSIS [None]
  - IMPAIRED HEALING [None]
  - CELLULITIS [None]
  - PANCREATIC DISORDER [None]
